FAERS Safety Report 13418698 (Version 1)
Quarter: 2017Q2

REPORT INFORMATION
  Report Type: Spontaneous
  Country: US (occurrence: US)
  Receive Date: 20170406
  Receipt Date: 20170406
  Transmission Date: 20170830
  Serious: No
  Sender: FDA-Public Use
  Company Number: US-ASTRAZENECA-2017SE32265

PATIENT
  Sex: Male
  Weight: 145.2 kg

DRUGS (28)
  1. SIMVASTATIN. [Concomitant]
     Active Substance: SIMVASTATIN
     Indication: HYPERLIPIDAEMIA
     Route: 048
  2. PROMETHAZINE [Concomitant]
     Active Substance: PROMETHAZINE\PROMETHAZINE HYDROCHLORIDE
     Indication: ABDOMINAL HERNIA
     Route: 048
  3. ADVAIR HFA [Concomitant]
     Active Substance: FLUTICASONE PROPIONATE\SALMETEROL XINAFOATE
     Indication: CHRONIC OBSTRUCTIVE PULMONARY DISEASE
  4. LYRICA [Suspect]
     Active Substance: PREGABALIN
     Indication: BACK PAIN
     Route: 048
  5. MAXAIR AUTOHALER [Concomitant]
     Active Substance: PIRBUTEROL ACETATE
     Indication: CHRONIC OBSTRUCTIVE PULMONARY DISEASE
  6. DALIRESP [Suspect]
     Active Substance: ROFLUMILAST
     Indication: CHRONIC OBSTRUCTIVE PULMONARY DISEASE
     Route: 048
  7. AMLODIPINE BESYLATE. [Concomitant]
     Active Substance: AMLODIPINE BESYLATE
     Indication: ESSENTIAL HYPERTENSION
     Route: 048
  8. NEXIUM [Concomitant]
     Active Substance: ESOMEPRAZOLE MAGNESIUM
     Indication: GASTROOESOPHAGEAL REFLUX DISEASE
     Route: 048
  9. PROVENTIL [Concomitant]
     Active Substance: ALBUTEROL
     Indication: CHRONIC OBSTRUCTIVE PULMONARY DISEASE
  10. PROMETHAZINE [Concomitant]
     Active Substance: PROMETHAZINE\PROMETHAZINE HYDROCHLORIDE
     Indication: ABDOMINAL HERNIA
     Route: 048
  11. KEPPRA XR [Concomitant]
     Active Substance: LEVETIRACETAM
     Indication: BACK PAIN
     Dosage: 1000, ONE TABLET TWO TIMES A DAY
     Route: 048
  12. GLIMEPIRIDE. [Concomitant]
     Active Substance: GLIMEPIRIDE
     Indication: TYPE 2 DIABETES MELLITUS
     Route: 048
  13. HYDROCORTISONE. [Concomitant]
     Active Substance: HYDROCORTISONE
     Dosage: THREE TIMES A DAY
     Route: 061
  14. VIAGRA [Suspect]
     Active Substance: SILDENAFIL CITRATE
     Route: 065
  15. METFORMIN [Concomitant]
     Active Substance: METFORMIN HYDROCHLORIDE
     Indication: TYPE 2 DIABETES MELLITUS
     Route: 048
  16. GABAPENTIN. [Concomitant]
     Active Substance: GABAPENTIN
     Route: 048
  17. DUONEB [Concomitant]
     Active Substance: ALBUTEROL SULFATE\IPRATROPIUM BROMIDE
     Indication: CHRONIC OBSTRUCTIVE PULMONARY DISEASE
     Dosage: 2.5MG-0.5MG/3ML, 2ML INHALED FOUR TIMES A DAY
  18. NASONEX [Concomitant]
     Active Substance: MOMETASONE FUROATE
  19. CELEBREX [Suspect]
     Active Substance: CELECOXIB
     Indication: ESSENTIAL HYPERTENSION
     Route: 048
  20. PROMETHAZINE [Concomitant]
     Active Substance: PROMETHAZINE\PROMETHAZINE HYDROCHLORIDE
     Indication: BRONCHITIS
     Route: 048
  21. POTASSIUM CHLORIDE. [Concomitant]
     Active Substance: POTASSIUM CHLORIDE
     Indication: ESSENTIAL HYPERTENSION
     Route: 048
  22. BENAZEPRIL [Concomitant]
     Active Substance: BENAZEPRIL HYDROCHLORIDE
     Indication: ESSENTIAL HYPERTENSION
     Route: 048
  23. MOBIC [Concomitant]
     Active Substance: MELOXICAM
     Indication: BACK PAIN
     Route: 048
  24. SPIRIVA [Concomitant]
     Active Substance: TIOTROPIUM BROMIDE MONOHYDRATE
     Indication: CHRONIC OBSTRUCTIVE PULMONARY DISEASE
  25. VICTOZA [Concomitant]
     Active Substance: LIRAGLUTIDE
     Indication: TYPE 2 DIABETES MELLITUS
     Dosage: 18MG/3ML, 1.2MG ONCE A DAY
     Route: 058
  26. MIRALAX [Concomitant]
     Active Substance: POLYETHYLENE GLYCOL 3350
     Route: 048
  27. PROMETHAZINE [Concomitant]
     Active Substance: PROMETHAZINE\PROMETHAZINE HYDROCHLORIDE
     Indication: BRONCHITIS
     Route: 048
  28. OXYCODONE [Concomitant]
     Active Substance: OXYCODONE
     Indication: BACK PAIN
     Route: 048

REACTIONS (8)
  - Middle ear effusion [Unknown]
  - Nausea [Unknown]
  - Dyspnoea [Unknown]
  - Dehydration [Unknown]
  - Vomiting [Unknown]
  - Dizziness [Unknown]
  - Drug hypersensitivity [Unknown]
  - Sleep apnoea syndrome [Unknown]
